FAERS Safety Report 8958625 (Version 2)
Quarter: 2013Q1

REPORT INFORMATION
  Report Type: Spontaneous
  Country: US (occurrence: None)
  Receive Date: 20121203
  Receipt Date: 20121213
  Transmission Date: 20140127
  Serious: Yes (Hospitalization)
  Sender: FDA-Public Use
  Company Number: USA/USA/12/0026829

PATIENT
  Age: 99 Year
  Sex: Female
  Weight: 40.82 kg

DRUGS (2)
  1. CLOPIDOGREL BISULFATE [Suspect]
     Indication: TRANSIENT ISCHAEMIC ATTACK
     Route: 048
  2. NAMENDA (MEMANTINE HYDROCHLORIDE) [Concomitant]

REACTIONS (5)
  - Vomiting [None]
  - Pneumonia aspiration [None]
  - Epistaxis [None]
  - Anaemia [None]
  - Thrombocytopenia [None]
